FAERS Safety Report 23982458 (Version 1)
Quarter: 2024Q2

REPORT INFORMATION
  Report Type: Spontaneous
  Country: US (occurrence: US)
  Receive Date: 20240617
  Receipt Date: 20240617
  Transmission Date: 20240715
  Serious: Yes (Other)
  Sender: FDA-Public Use
  Company Number: US-SA-SAC20240614000169

PATIENT
  Age: 70 Year
  Sex: Male
  Weight: 95 kg

DRUGS (7)
  1. DUPIXENT [Suspect]
     Active Substance: DUPILUMAB
     Indication: Asthma
     Dosage: 300 MG, QOW
     Route: 058
     Dates: start: 2021
  2. DUPIXENT [Suspect]
     Active Substance: DUPILUMAB
     Indication: Osteoarthritis
  3. FENOFIBRIC ACID [Concomitant]
     Active Substance: FENOFIBRIC ACID
  4. TAMSULOSIN HYDROCHLORIDE [Concomitant]
     Active Substance: TAMSULOSIN HYDROCHLORIDE
  5. FINASTERIDE [Concomitant]
     Active Substance: FINASTERIDE
  6. LISINOPRIL [Concomitant]
     Active Substance: LISINOPRIL
  7. ROSUVASTATIN CALCIUM [Concomitant]
     Active Substance: ROSUVASTATIN CALCIUM

REACTIONS (3)
  - Atrial fibrillation [Unknown]
  - Heart rate irregular [Unknown]
  - Product use in unapproved indication [Unknown]

NARRATIVE: CASE EVENT DATE: 20230101
